FAERS Safety Report 25578883 (Version 1)
Quarter: 2025Q3

REPORT INFORMATION
  Report Type: Report from Study
  Country: CA (occurrence: CA)
  Receive Date: 20250718
  Receipt Date: 20250718
  Transmission Date: 20251021
  Serious: Yes (Hospitalization, Other)
  Sender: TAKEDA
  Company Number: CA-TAKEDA-2024TUS111056

PATIENT
  Sex: Male

DRUGS (4)
  1. VEDOLIZUMAB [Suspect]
     Active Substance: VEDOLIZUMAB
     Indication: Colitis ulcerative
     Dates: start: 20181024, end: 20240604
  2. PREDNISONE [Concomitant]
     Active Substance: PREDNISONE
  3. MESALAMINE [Concomitant]
     Active Substance: MESALAMINE
  4. METHYLPREDNISOLONE [Concomitant]
     Active Substance: METHYLPREDNISOLONE

REACTIONS (2)
  - Colitis ulcerative [Not Recovered/Not Resolved]
  - Diarrhoea [Unknown]
